FAERS Safety Report 16117720 (Version 1)
Quarter: 2019Q2

REPORT INFORMATION
  Report Type: Spontaneous
  Country: US (occurrence: US)
  Receive Date: 20190326
  Receipt Date: 20190326
  Transmission Date: 20190711
  Serious: No
  Sender: FDA-Public Use
  Company Number: US-AJANTA PHARMA USA INC.-2064627

PATIENT
  Age: 60 Year
  Sex: Male
  Weight: 77.27 kg

DRUGS (5)
  1. ENTACAPONE (ANDA 205792) [Suspect]
     Active Substance: ENTACAPONE
     Indication: PARKINSON^S DISEASE
     Route: 048
     Dates: start: 20181108, end: 20190120
  2. AZILECT [Concomitant]
     Active Substance: RASAGILINE MESYLATE
  3. LIPITOR [Concomitant]
     Active Substance: ATORVASTATIN CALCIUM
  4. PLAVIX [Concomitant]
     Active Substance: CLOPIDOGREL BISULFATE
  5. LEVODOPA [Concomitant]
     Active Substance: LEVODOPA

REACTIONS (1)
  - Diarrhoea [Recovered/Resolved]

NARRATIVE: CASE EVENT DATE: 20181230
